FAERS Safety Report 6502239-8 (Version None)
Quarter: 2009Q4

REPORT INFORMATION
  Report Type: 
  Country: None (occurrence: None)
  Receive Date: 20091214
  Receipt Date: 20091202
  Transmission Date: 20100525
  Serious: Yes (Hospitalization)
  Sender: FDA-Public Use
  Company Number: 2009AL001332

PATIENT
  Age: 37 Year
  Sex: Female

DRUGS (10)
  1. DICLOFENAC SODIUM [Suspect]
     Indication: BACK PAIN
     Dosage: 500 MG;BID
     Dates: start: 20080901
  2. DEPAKOTE [Concomitant]
  3. ADCAL [Concomitant]
  4. CO-CODAMOL [Concomitant]
  5. EPILIM [Concomitant]
  6. OMEPRAZOLE [Concomitant]
  7. PREDNISOLONE [Concomitant]
  8. TEMOCAPRIL HYDROCHLORIDE [Concomitant]
  9. TRAMADOL [Concomitant]
  10. ACETIBRIN [Concomitant]

REACTIONS (4)
  - ABDOMINAL DISTENSION [None]
  - DIARRHOEA [None]
  - MUSCLE SPASMS [None]
  - RECTAL HAEMORRHAGE [None]
